FAERS Safety Report 22325094 (Version 1)
Quarter: 2023Q2

REPORT INFORMATION
  Report Type: Spontaneous
  Country: US (occurrence: None)
  Receive Date: 20230513
  Receipt Date: 20230513
  Transmission Date: 20230721
  Serious: Yes (Life-Threatening, Disabling, Other)
  Sender: FDA-Public Use
  Company Number: None

PATIENT
  Age: 79 Year
  Sex: Male
  Weight: 60.75 kg

DRUGS (10)
  1. FLOMAX [Suspect]
     Active Substance: TAMSULOSIN HYDROCHLORIDE
     Indication: Benign prostatic hyperplasia
     Dosage: FREQUENCY : DAILY;?
     Route: 048
     Dates: start: 20131215, end: 20230110
  2. CARBIDOPA [Concomitant]
     Active Substance: CARBIDOPA
  3. CARBIDOPA\LEVODOPA [Concomitant]
     Active Substance: CARBIDOPA\LEVODOPA
  4. SINEMET CR [Concomitant]
     Active Substance: CARBIDOPA\LEVODOPA
  5. MIDODRINE [Concomitant]
     Active Substance: MIDODRINE
  6. MOMETASONE [Concomitant]
     Active Substance: MOMETASONE
  7. TAMSULOSIN [Concomitant]
     Active Substance: TAMSULOSIN
  8. medium chain triglycerides [Concomitant]
  9. magnesium multivitamin [Concomitant]
  10. IBUPROFEN [Concomitant]
     Active Substance: IBUPROFEN

REACTIONS (13)
  - Hypotension [None]
  - Fall [None]
  - Appetite disorder [None]
  - Refusal of treatment by patient [None]
  - Hallucination [None]
  - Confusional state [None]
  - Gait inability [None]
  - Loss of consciousness [None]
  - Mobility decreased [None]
  - Parkinson^s disease [None]
  - Condition aggravated [None]
  - Loss of personal independence in daily activities [None]
  - Cognitive disorder [None]

NARRATIVE: CASE EVENT DATE: 20230102
